FAERS Safety Report 10943113 (Version 2)
Quarter: 2015Q2

REPORT INFORMATION
  Report Type: Spontaneous
  Country: US (occurrence: US)
  Receive Date: 20150322
  Receipt Date: 20150524
  Transmission Date: 20150821
  Serious: No
  Sender: FDA-Public Use
  Company Number: US-JNJFOC-20141003235

PATIENT
  Sex: Female

DRUGS (2)
  1. INVOKANA [Suspect]
     Active Substance: CANAGLIFLOZIN
     Indication: PRODUCT USED FOR UNKNOWN INDICATION
     Route: 065
  2. INVOKANA [Suspect]
     Active Substance: CANAGLIFLOZIN
     Indication: PRODUCT USED FOR UNKNOWN INDICATION
     Route: 065

REACTIONS (9)
  - Weight decreased [Recovered/Resolved]
  - Abdominal distension [Unknown]
  - Myalgia [Unknown]
  - Malaise [Unknown]
  - Gait disturbance [Unknown]
  - Abdominal pain [Unknown]
  - Pruritus [Unknown]
  - Fungal infection [Unknown]
  - Abdominal discomfort [Unknown]
